FAERS Safety Report 5692287-2 (Version None)
Quarter: 2008Q2

REPORT INFORMATION
  Report Type: 
  Country: None (occurrence: None)
  Receive Date: 20080402
  Receipt Date: 20080324
  Transmission Date: 20081010
  Serious: Yes (Hospitalization)
  Sender: FDA-Public Use
  Company Number: US-JNJFOC-20080306269

PATIENT
  Sex: Male
  Weight: 90.72 kg

DRUGS (7)
  1. DURAGESIC-100 [Suspect]
     Indication: PAIN
     Route: 062
  2. KLONOPIN [Concomitant]
     Indication: PANIC ATTACK
     Route: 048
  3. HYDROCODONE BITARTRATE [Concomitant]
     Indication: BREAKTHROUGH PAIN
     Route: 048
  4. CELEBREX [Concomitant]
     Indication: ARTHRALGIA
     Route: 048
  5. EFFEXOR [Concomitant]
     Indication: ANTIDEPRESSANT THERAPY
     Route: 048
  6. ASMANEX TWISTHALER [Concomitant]
     Indication: ASTHMA
     Route: 055
  7. NEURONTIN [Concomitant]
     Indication: COMPLEX REGIONAL PAIN SYNDROME
     Route: 048

REACTIONS (4)
  - APPLICATION SITE PAPULES [None]
  - APPLICATION SITE RASH [None]
  - OSTEONECROSIS [None]
  - WRONG TECHNIQUE IN DRUG USAGE PROCESS [None]
